FAERS Safety Report 15383984 (Version 1)
Quarter: 2018Q4

REPORT INFORMATION
  Report Type: Spontaneous
  Country: FR (occurrence: FR)
  Receive Date: 20180914
  Receipt Date: 20180914
  Transmission Date: 20190204
  Serious: Yes (Death)
  Sender: FDA-Public Use
  Company Number: FR-TEVA-2018-FR-954104

PATIENT
  Age: 68 Year
  Sex: Male
  Weight: 56 kg

DRUGS (6)
  1. CLOZAPINE. [Suspect]
     Active Substance: CLOZAPINE
     Indication: PSYCHOTIC DISORDER
     Dosage: 100 MILLIGRAM DAILY;
     Route: 048
     Dates: end: 20180713
  2. TADENAN 50 MG, CAPSULE MOLLE [Suspect]
     Active Substance: PYGEUM
     Dosage: 50 MILLIGRAM DAILY;
     Route: 048
  3. MODOPAR 62,5 (50 MG/12,5 MG), G?LULE [Concomitant]
     Dosage: 62.5 MILLIGRAM DAILY;
     Route: 048
  4. MODOPAR 100 MG/25 MG, COMPRIM? QUADRIS?CABLE [Concomitant]
     Dosage: 125 MILLIGRAM DAILY;
     Route: 048
  5. ZOPICLONE [Concomitant]
     Active Substance: ZOPICLONE
     Dosage: 7.5 MILLIGRAM DAILY;
     Route: 048
  6. LODOZ 5 MG/6,25 MG, COMPRIM? PELLICUL? [Suspect]
     Active Substance: BISOPROLOL FUMARATE\HYDROCHLOROTHIAZIDE
     Dosage: 5 MILLIGRAM DAILY;
     Route: 048

REACTIONS (1)
  - Agranulocytosis [Fatal]

NARRATIVE: CASE EVENT DATE: 20180717
